FAERS Safety Report 7038132-4 (Version None)
Quarter: 2010Q4

REPORT INFORMATION
  Report Type: 
  Country: None (occurrence: None)
  Receive Date: 20101011
  Receipt Date: 20101001
  Transmission Date: 20110411
  Serious: Yes (Hospitalization)
  Sender: FDA-Public Use
  Company Number: US-ABBOTT-10P-163-0675362-00

PATIENT
  Sex: Male
  Weight: 52.664 kg

DRUGS (2)
  1. HUMIRA [Suspect]
     Indication: CROHN'S DISEASE
     Dates: start: 20080101
  2. LORTAB [Concomitant]
     Indication: PAIN

REACTIONS (3)
  - ANAL FISTULA [None]
  - PYREXIA [None]
  - RECTAL ABSCESS [None]
